FAERS Safety Report 11792840 (Version 1)
Quarter: 2015Q4

REPORT INFORMATION
  Report Type: Spontaneous
  Country: KR (occurrence: None)
  Receive Date: 20151130
  Receipt Date: 20151130
  Transmission Date: 20160305
  Serious: Yes (Other)
  Sender: FDA-Public Use
  Company Number: 2015R1-106702

PATIENT

DRUGS (3)
  1. THALIDOMIDE (THALIDOMIDE) UNKNOWN [Suspect]
     Active Substance: THALIDOMIDE
     Indication: CHEMOTHERAPY
     Dosage: 50-100 MG, DAILY, UNKNOWN
  2. CYCLOPHOSPHAMIDE (CYCLOPHOSPHAMIDE) UNKNOWN [Suspect]
     Active Substance: CYCLOPHOSPHAMIDE
     Indication: CHEMOTHERAPY
     Dosage: 25-50 MG, DAILY, UNKNOWN
  3. DEXAMETHASONE (DEXAMETHASONE) UNKNOWN [Suspect]
     Active Substance: DEXAMETHASONE
     Indication: CHEMOTHERAPY
     Dosage: 10-40 MG , 1/WEEK, UNKNOWN

REACTIONS (1)
  - Peripheral sensory neuropathy [None]
